FAERS Safety Report 7269792-0 (Version None)
Quarter: 2011Q1

REPORT INFORMATION
  Report Type: 
  Country: None (occurrence: None)
  Receive Date: 20110124
  Receipt Date: 20110110
  Transmission Date: 20110831
  Serious: Yes (Death)
  Sender: FDA-Public Use
  Company Number: 025311

PATIENT
  Age: 19 Year
  Sex: Female

DRUGS (1)
  1. PHENTERMINE [Suspect]
     Dosage: ()

REACTIONS (3)
  - CONVULSION [None]
  - CARDIAC ARREST [None]
  - TOXICITY TO VARIOUS AGENTS [None]
